FAERS Safety Report 9706758 (Version 2)
Quarter: 2014Q1

REPORT INFORMATION
  Report Type: Report from Study
  Country: BR (occurrence: BR)
  Receive Date: 20131125
  Receipt Date: 20140129
  Transmission Date: 20141002
  Serious: Yes (Other)
  Sender: FDA-Public Use
  Company Number: PHHY2013BR134780

PATIENT
  Age: 70 Year
  Sex: Male
  Weight: 74 kg

DRUGS (3)
  1. ACLASTA [Suspect]
     Indication: OSTEOPOROSIS
     Dosage: 5 MG, YEARLY
     Route: 042
     Dates: start: 201305
  2. ARTRODAR [Concomitant]
     Indication: OSTEOARTHRITIS
     Dosage: 1 DF, DAILY (APPROXIMATELY 4 YEARS AGO)
     Route: 048
     Dates: start: 2010
  3. REUQUINOL [Concomitant]
     Indication: OSTEOARTHRITIS
     Dosage: 1 DF, DAILY (APPROXIMATELY 4 YEARS AGO)
     Route: 048
     Dates: start: 2010

REACTIONS (2)
  - Cataract [Recovered/Resolved]
  - Diabetes mellitus [Not Recovered/Not Resolved]
